FAERS Safety Report 23977946 (Version 1)
Quarter: 2024Q2

REPORT INFORMATION
  Report Type: Spontaneous
  Country: US (occurrence: US)
  Receive Date: 20240614
  Receipt Date: 20240614
  Transmission Date: 20240716
  Serious: No
  Sender: FDA-Public Use
  Company Number: US-UROGEN PHARMA LTD.-2024-UGN-000054

PATIENT

DRUGS (17)
  1. JELMYTO [Suspect]
     Active Substance: MITOMYCIN
     Indication: Product used for unknown indication
     Dosage: 10 CC, ANTEGRADE, ONCE A WEEK
     Dates: start: 20240306, end: 20240306
  2. JELMYTO [Suspect]
     Active Substance: MITOMYCIN
     Dosage: 10 CC, ANTEGRADE, ONCE A WEEK
     Dates: start: 20240313, end: 20240313
  3. JELMYTO [Suspect]
     Active Substance: MITOMYCIN
     Dosage: 10 CC, ANTEGRADE, ONCE A WEEK
     Dates: start: 20240320, end: 20240320
  4. JELMYTO [Suspect]
     Active Substance: MITOMYCIN
     Dosage: 10 CC, ANTEGRADE, ONCE A WEEK
     Dates: start: 20240327, end: 20240327
  5. JELMYTO [Suspect]
     Active Substance: MITOMYCIN
     Dosage: 10 CC, ANTEGRADE, ONCE A WEEK
     Dates: start: 20240403, end: 20240403
  6. JELMYTO [Suspect]
     Active Substance: MITOMYCIN
     Dosage: 10 CC, ANTEGRADE, ONCE A WEEK
     Dates: start: 20240410, end: 20240410
  7. AMITRIPTYLINE [Concomitant]
     Active Substance: AMITRIPTYLINE
     Dosage: 100 MILLIGRAM, NIGHTLY (BEDTIME)
     Route: 048
  8. BENZHYDROCODONE-ACETAMINOPHEN [Concomitant]
     Dosage: UNK, Q6H (EACH 6 HR)
     Route: 048
  9. CARBAMAZEPINE [Concomitant]
     Active Substance: CARBAMAZEPINE
     Dosage: 200 MILLIGRAM, BID
     Route: 048
  10. CELEBREX [Concomitant]
     Active Substance: CELECOXIB
     Dosage: 200 MILLIGRAM, BID
     Route: 048
  11. ESOMEPRAZOLE [Concomitant]
     Active Substance: ESOMEPRAZOLE
     Dosage: 40 MILLIGRAM, QD (EACH DAY)
     Route: 048
  12. EZETIMIBE [Concomitant]
     Active Substance: EZETIMIBE
     Dosage: 10 MILLIGRAM, QD (EACH DAY)
     Route: 048
  13. TRELEGY ELLIPTA [Concomitant]
     Active Substance: FLUTICASONE FUROATE\UMECLIDINIUM BROMIDE\VILANTEROL TRIFENATATE
     Dosage: UNK UNK, QD (EACH DAY), DAILY AT THE SAME TIME EVERY DAY
  14. GEMFIBROZIL [Concomitant]
     Active Substance: GEMFIBROZIL
     Dosage: 600 MILLIGRAM, BID
     Route: 048
  15. NEBIVOLOL [Concomitant]
     Active Substance: NEBIVOLOL
     Dosage: 5 MILLIGRAM, QD (EACH DAY)
     Route: 048
  16. AMLODIPINE\HYDROCHLOROTHIAZIDE\OLMESARTAN [Concomitant]
     Active Substance: AMLODIPINE\HYDROCHLOROTHIAZIDE\OLMESARTAN
     Dosage: UNK UNK, 40 MG-10 MG-12.5 MG, QD (EACH DAY)
     Route: 048
  17. FLOMAX [Concomitant]
     Active Substance: TAMSULOSIN HYDROCHLORIDE
     Dosage: 0.4 MILLIGRAM, QD (EACH DAY)
     Route: 048

REACTIONS (2)
  - Urticaria [Recovered/Resolved]
  - Urticaria [Recovered/Resolved]

NARRATIVE: CASE EVENT DATE: 20240404
